FAERS Safety Report 4578094-2 (Version None)
Quarter: 2005Q1

REPORT INFORMATION
  Report Type: 
  Country: None (occurrence: None)
  Receive Date: 20050209
  Receipt Date: 20050125
  Transmission Date: 20050727
  Serious: Yes (Hospitalization)
  Sender: FDA-Public Use
  Company Number: FR_050105688

PATIENT
  Age: 85 Year
  Sex: Male

DRUGS (6)
  1. ZYPREXA [Suspect]
     Dosage: 5 MG/1 DAY
     Dates: end: 20041015
  2. LORAZEPAM [Concomitant]
  3. ALLOPUREINOL [Concomitant]
  4. PLAVIX [Concomitant]
  5. IMOVANE (ZOPICLONE) [Concomitant]
  6. ZOCOR (SIMVASTATIN RATIOPHARM) [Concomitant]

REACTIONS (6)
  - ABNORMAL BEHAVIOUR [None]
  - DISORIENTATION [None]
  - ENCEPHALOPATHY [None]
  - HALLUCINATION, VISUAL [None]
  - HYPERREFLEXIA [None]
  - MYOCLONUS [None]
